FAERS Safety Report 4912575-4 (Version None)
Quarter: 2006Q1

REPORT INFORMATION
  Report Type: 
  Country: None (occurrence: None)
  Receive Date: 20060215
  Receipt Date: 20060209
  Transmission Date: 20060701
  Serious: Yes (Other)
  Sender: FDA-Public Use
  Company Number: US-GLAXOSMITHKLINE-A0593078A

PATIENT
  Sex: Female

DRUGS (3)
  1. LAMICTAL [Suspect]
     Indication: BIPOLAR DISORDER
     Dosage: 200MG PER DAY
     Route: 048
  2. DEPAKOTE [Concomitant]
  3. KLONOPIN [Concomitant]

REACTIONS (5)
  - APHASIA [None]
  - CRYING [None]
  - IRRITABILITY [None]
  - PANIC ATTACK [None]
  - TREMOR [None]
